FAERS Safety Report 4331062-8 (Version None)
Quarter: 2004Q2

REPORT INFORMATION
  Report Type: 
  Country: None (occurrence: None)
  Receive Date: 20040405
  Receipt Date: 20040330
  Transmission Date: 20050107
  Serious: Yes (Hospitalization)
  Sender: FDA-Public Use
  Company Number: PHBS2004CL04358

PATIENT
  Age: 34 Year
  Sex: Female

DRUGS (3)
  1. TRILEPTAL [Suspect]
     Indication: EPILEPSY
     Dates: start: 20030801
  2. VALCOTE [Concomitant]
  3. RAVOTRIL [Concomitant]

REACTIONS (4)
  - DIZZINESS [None]
  - DRUG TOXICITY [None]
  - PIGMENTATION DISORDER [None]
  - SOMNOLENCE [None]
